FAERS Safety Report 10929958 (Version 2)
Quarter: 2015Q3

REPORT INFORMATION
  Report Type: Spontaneous
  Country: JP (occurrence: JP)
  Receive Date: 20150319
  Receipt Date: 20150724
  Transmission Date: 20151125
  Serious: Yes (Death)
  Sender: FDA-Public Use
  Company Number: JP-MALLINCKRODT-T201501656

PATIENT
  Age: 66 Year
  Sex: Female
  Weight: 49 kg

DRUGS (22)
  1. MS CONTIN [Concomitant]
     Active Substance: MORPHINE SULFATE
     Indication: ANALGESIC THERAPY
     Dosage: 60 MG
     Route: 048
     Dates: start: 20141119
  2. ETIZOLAM [Concomitant]
     Active Substance: ETIZOLAM
     Dosage: 0.5 MG
     Route: 048
     Dates: end: 20141201
  3. MAGMITT [Concomitant]
     Active Substance: MAGNESIUM OXIDE
     Dosage: 1500 MG
     Route: 048
  4. TAKEPRON [Concomitant]
     Active Substance: LANSOPRAZOLE
     Dosage: 30 MG
     Route: 048
     Dates: start: 20141119
  5. LYRICA [Concomitant]
     Active Substance: PREGABALIN
     Dosage: 50 MG
     Route: 048
     Dates: start: 20141126
  6. MORPHINE [Concomitant]
     Active Substance: MORPHINE
     Dosage: 0.5 MG, PRN
     Route: 051
     Dates: start: 20141116, end: 20141118
  7. CALONAL [Concomitant]
     Active Substance: ACETAMINOPHEN
     Dosage: 2700 MG
     Route: 048
     Dates: start: 20141118
  8. METHADONE [Suspect]
     Active Substance: METHADONE HYDROCHLORIDE
     Dosage: 45 MG DAILY DOSE
     Route: 048
     Dates: start: 20141120, end: 20141125
  9. METHADONE [Suspect]
     Active Substance: METHADONE HYDROCHLORIDE
     Dosage: 10 MG (40 MG DAILY DOSE)
     Route: 048
     Dates: start: 20141216, end: 20150204
  10. BIOFERMIN [Concomitant]
     Active Substance: BACILLUS SUBTILIS\LACTOBACILLUS ACIDOPHILUS\STREPTOCOCCUS FAECAIS
     Dosage: UNK
     Route: 048
     Dates: end: 20141118
  11. DECADRON [Concomitant]
     Active Substance: DEXAMETHASONE
     Dosage: 2 MG
     Route: 048
     Dates: start: 20141218
  12. MORPHINE HYDROCHLORIDE [Concomitant]
     Active Substance: MORPHINE HYDROCHLORIDE
     Dosage: 20 MG, PRN
     Route: 048
     Dates: start: 20141119
  13. AMLODIPINE [Concomitant]
     Active Substance: AMLODIPINE BESYLATE
     Dosage: 5 MG
     Route: 048
  14. DESYREL [Concomitant]
     Active Substance: TRAZODONE HYDROCHLORIDE
     Dosage: 25 MG
     Route: 048
     Dates: start: 20141201
  15. XYLOCAINE [Concomitant]
     Active Substance: LIDOCAINE HYDROCHLORIDE
     Dosage: 120 MG
     Route: 051
     Dates: start: 20141218
  16. MORPHINE [Suspect]
     Active Substance: MORPHINE
     Indication: ANALGESIC THERAPY
     Dosage: 20 MG, PRN
     Route: 048
     Dates: start: 20141119
  17. BUSCOPAN [Concomitant]
     Active Substance: BUTYLSCOPOLAMINE BROMIDE
     Dosage: 20 MG
     Route: 048
     Dates: start: 20141119, end: 20141201
  18. METHADONE [Suspect]
     Active Substance: METHADONE HYDROCHLORIDE
     Dosage: 15 MG (60 MG DAILY DOSE)
     Route: 048
     Dates: start: 20141125, end: 20141215
  19. CRESTOR [Concomitant]
     Active Substance: ROSUVASTATIN CALCIUM
     Dosage: 2.5 MG
     Route: 048
  20. ZYPREXA [Suspect]
     Active Substance: OLANZAPINE
     Indication: PROPHYLAXIS
     Dosage: 1.25 MG DAILY DOSE
     Route: 048
     Dates: start: 20141119
  21. METHADONE [Suspect]
     Active Substance: METHADONE HYDROCHLORIDE
     Indication: CANCER PAIN
     Dosage: 10 MG (30 MG DAILY DOSE)
     Route: 048
     Dates: start: 20141117, end: 20141119
  22. MORPHINE HYDROCHLORIDE [Concomitant]
     Active Substance: MORPHINE HYDROCHLORIDE
     Dosage: UNK
     Route: 048
     Dates: start: 20141119

REACTIONS (3)
  - Thirst [Recovering/Resolving]
  - Cervix carcinoma [Fatal]
  - Somnolence [Recovering/Resolving]

NARRATIVE: CASE EVENT DATE: 20141119
